FAERS Safety Report 9547156 (Version 1)
Quarter: 2013Q3

REPORT INFORMATION
  Report Type: Spontaneous
  Country: US (occurrence: None)
  Receive Date: 20130920
  Receipt Date: 20130920
  Transmission Date: 20140515
  Serious: Yes (Other)
  Sender: FDA-Public Use
  Company Number: B0923286A

PATIENT
  Age: 46 Year
  Sex: Male

DRUGS (1)
  1. CALCIUM CARBONATE [Suspect]
     Indication: GASTROOESOPHAGEAL REFLUX DISEASE
     Route: 048

REACTIONS (9)
  - Milk-alkali syndrome [None]
  - Dehydration [None]
  - Renal failure acute [None]
  - Hypercalcaemia [None]
  - Electrocardiogram QT shortened [None]
  - Electrocardiogram ST segment [None]
  - Incorrect dose administered [None]
  - Dyspepsia [None]
  - Abdominal pain upper [None]
